FAERS Safety Report 25620923 (Version 1)
Quarter: 2025Q3

REPORT INFORMATION
  Report Type: Spontaneous
  Country: US (occurrence: US)
  Receive Date: 20250730
  Receipt Date: 20250730
  Transmission Date: 20251021
  Serious: Yes (Other)
  Sender: AMNEAL
  Company Number: US-AMNEAL-2024-AMRX-02502

PATIENT
  Sex: Female
  Weight: 77.1 kg

DRUGS (2)
  1. BACLOFEN [Suspect]
     Active Substance: BACLOFEN
     Indication: Product used for unknown indication
     Route: 037
  2. BACLOFEN [Suspect]
     Active Substance: BACLOFEN
     Route: 037

REACTIONS (4)
  - Muscle spasticity [Recovered/Resolved]
  - Drug ineffective [Unknown]
  - Device issue [Unknown]
  - Device occlusion [Unknown]
